FAERS Safety Report 17481689 (Version 2)
Quarter: 2020Q1

REPORT INFORMATION
  Report Type: Report from Study
  Country: US (occurrence: US)
  Receive Date: 20200302
  Receipt Date: 20200323
  Transmission Date: 20200409
  Serious: No
  Sender: FDA-Public Use
  Company Number: NVSC2020US057144

PATIENT
  Age: 55 Year
  Sex: Male

DRUGS (2)
  1. MAYZENT [Suspect]
     Active Substance: SIPONIMOD
     Indication: PROGRESSIVE RELAPSING MULTIPLE SCLEROSIS
     Dosage: 0.2 MG
     Route: 048
     Dates: start: 20200223
  2. MAYZENT [Suspect]
     Active Substance: SIPONIMOD
     Indication: MULTIPLE SCLEROSIS
     Dosage: 1 MG (FOUR TIMES A DAY)
     Route: 048
     Dates: start: 20200218

REACTIONS (7)
  - Vertigo [Unknown]
  - Hypertension [Unknown]
  - Headache [Unknown]
  - Heart rate decreased [Unknown]
  - Somnolence [Unknown]
  - Balance disorder [Unknown]
  - Rubber sensitivity [Unknown]

NARRATIVE: CASE EVENT DATE: 20200218
